FAERS Safety Report 8620728-7 (Version None)
Quarter: 2012Q3

REPORT INFORMATION
  Report Type: 
  Country: None (occurrence: None)
  Receive Date: 20120824
  Receipt Date: 20120810
  Transmission Date: 20120928
  Serious: Yes (Hospitalization)
  Sender: FDA-Public Use
  Company Number: JP-CELGENEUS-087-21880-12072850

PATIENT
  Sex: Female
  Weight: 44.7 kg

DRUGS (7)
  1. CELEBREX [Concomitant]
     Indication: PAIN MANAGEMENT
     Dosage: 200 MILLIGRAM
     Route: 048
     Dates: start: 20100101
  2. REVLIMID [Suspect]
     Indication: MULTIPLE MYELOMA
     Dosage: 15 MILLIGRAM
     Route: 048
     Dates: start: 20120110, end: 20120227
  3. CYCLOPHOSPHAMIDE [Concomitant]
     Indication: MULTIPLE MYELOMA
     Dosage: 300 MILLIGRAM
     Route: 065
     Dates: start: 20120110, end: 20120227
  4. REVLIMID [Suspect]
     Dosage: 10 MILLIGRAM
     Route: 048
     Dates: start: 20120306, end: 20120717
  5. LIVALO [Concomitant]
     Dosage: 1 MILLIGRAM
     Route: 048
     Dates: start: 20100101
  6. CYCLOPHOSPHAMIDE [Concomitant]
     Dosage: 200 MILLIGRAM
     Route: 065
     Dates: start: 20120306, end: 20120717
  7. DEXAMETHASONE ACETATE [Suspect]
     Indication: MULTIPLE MYELOMA
     Route: 048
     Dates: start: 20120110, end: 20120717

REACTIONS (1)
  - FANCONI SYNDROME ACQUIRED [None]
